FAERS Safety Report 25184997 (Version 1)
Quarter: 2025Q2

REPORT INFORMATION
  Report Type: Spontaneous
  Country: US (occurrence: US)
  Receive Date: 20250410
  Receipt Date: 20250410
  Transmission Date: 20250717
  Serious: Yes (Other)
  Sender: MEDEXUS PHARMA
  Company Number: US-MEDEXUS PHARMA, INC.-2025MED00100

PATIENT
  Sex: Female
  Weight: 70.295 kg

DRUGS (7)
  1. RASUVO [Suspect]
     Active Substance: METHOTREXATE SODIUM
     Indication: Rheumatoid arthritis
  2. RASUVO [Suspect]
     Active Substance: METHOTREXATE SODIUM
  3. RASUVO [Suspect]
     Active Substance: METHOTREXATE SODIUM
     Indication: Rheumatoid arthritis
     Dosage: 10 MG, 1X/WEEK TO RIGHT UPPER THIGH
  4. RASUVO [Suspect]
     Active Substance: METHOTREXATE SODIUM
     Dosage: 10 MG, 1X/WEEK TO RIGHT UPPER THIGH
     Route: 048
  5. HUMIRA [Suspect]
     Active Substance: ADALIMUMAB
     Indication: Rheumatoid arthritis
  6. METOPROLOL [Concomitant]
     Active Substance: METOPROLOL
  7. SULFADIAZINE [Concomitant]
     Active Substance: SULFADIAZINE

REACTIONS (7)
  - Skin cancer [Unknown]
  - Precancerous skin lesion [Unknown]
  - Rheumatoid arthritis [Not Recovered/Not Resolved]
  - Injection site indentation [Unknown]
  - Nodule [Not Recovered/Not Resolved]
  - Drug ineffective [Not Recovered/Not Resolved]
  - Device malfunction [Unknown]

NARRATIVE: CASE EVENT DATE: 20170101
